FAERS Safety Report 8036518-2 (Version None)
Quarter: 2012Q1

REPORT INFORMATION
  Report Type: 
  Country: None (occurrence: None)
  Receive Date: 20120111
  Receipt Date: 20120104
  Transmission Date: 20120608
  Serious: Yes (Other)
  Sender: FDA-Public Use
  Company Number: US-AMGEN-USASP2012000434

PATIENT
  Age: 8 Month
  Sex: Female
  Weight: 2.2 kg

DRUGS (2)
  1. ENBREL [Suspect]
     Dosage: 50 MG, UNK
     Route: 064
     Dates: start: 20000101
  2. CORTICOSTEROIDS [Concomitant]
     Dosage: UNK

REACTIONS (1)
  - PREMATURE BABY [None]
